FAERS Safety Report 22641154 (Version 1)
Quarter: 2023Q2

REPORT INFORMATION
  Report Type: Report from Study
  Country: US (occurrence: None)
  Receive Date: 20230626
  Receipt Date: 20230626
  Transmission Date: 20230721
  Serious: Yes (Hospitalization)
  Sender: FDA-Public Use
  Company Number: US-ROCHE-3373991

PATIENT
  Age: 47 Year
  Sex: Male
  Weight: 108.8 kg

DRUGS (2)
  1. ATEZOLIZUMAB [Suspect]
     Active Substance: ATEZOLIZUMAB
     Indication: Adenocarcinoma of colon
     Dosage: 840 MG IV ON DAY 1?LAST DOSE: 23/FEB/2021
     Route: 041
     Dates: start: 20200129
  2. TRAZODONE [Concomitant]
     Active Substance: TRAZODONE HYDROCHLORIDE

REACTIONS (2)
  - Blood bilirubin increased [Recovered/Resolved]
  - Autoimmune hepatitis [Recovered/Resolved]

NARRATIVE: CASE EVENT DATE: 20210318
